FAERS Safety Report 10188934 (Version 1)
Quarter: 2014Q2

REPORT INFORMATION
  Report Type: Spontaneous
  Country: US (occurrence: US)
  Receive Date: 20140522
  Receipt Date: 20140522
  Transmission Date: 20141212
  Serious: No
  Sender: FDA-Public Use
  Company Number: US-BAYER-2014-075696

PATIENT
  Sex: Female

DRUGS (3)
  1. ALEVE CAPLET [Suspect]
     Dosage: 1- 2 DF, PRN
     Route: 048
     Dates: start: 20140519
  2. VITAMIN E [Concomitant]
  3. FISH OIL [Concomitant]
     Dosage: UNK

REACTIONS (2)
  - Abdominal discomfort [Recovered/Resolved]
  - Off label use [None]
